FAERS Safety Report 6739706-8 (Version None)
Quarter: 2010Q2

REPORT INFORMATION
  Report Type: 
  Country: None (occurrence: None)
  Receive Date: 20100525
  Receipt Date: 20100517
  Transmission Date: 20101027
  Serious: Yes (Other)
  Sender: FDA-Public Use
  Company Number: US-ROCHE-703809

PATIENT
  Age: 28 Year
  Sex: Male

DRUGS (2)
  1. BEVACIZUMAB [Suspect]
     Indication: GLIOMA
     Route: 065
  2. CARBOPLATIN [Concomitant]
     Indication: GLIOMA

REACTIONS (1)
  - GLIOMATOSIS CEREBRI [None]
